FAERS Safety Report 9709278 (Version 2)
Quarter: 2014Q2

REPORT INFORMATION
  Report Type: Spontaneous
  Country: FI (occurrence: FI)
  Receive Date: 20131125
  Receipt Date: 20140509
  Transmission Date: 20141212
  Serious: Yes (Hospitalization)
  Sender: FDA-Public Use
  Company Number: FI-ABBVIE-13P-055-1169805-00

PATIENT
  Age: 15 Year
  Sex: Female
  Weight: 73.9 kg

DRUGS (13)
  1. HUMIRA [Suspect]
     Indication: JUVENILE IDIOPATHIC ARTHRITIS
  2. HUMIRA [Suspect]
     Route: 058
     Dates: start: 201203, end: 20130718
  3. PREDNISOLON [Suspect]
     Indication: PRODUCT USED FOR UNKNOWN INDICATION
     Dosage: X1
     Dates: start: 20130927
  4. PREDNISOLON [Suspect]
     Dosage: 1 FOR ONE WEEK
  5. PREDNISOLON [Suspect]
     Dosage: 1 FOR ONE WEEK
  6. PREDNISOLON [Suspect]
     Dosage: CONTINUED AS 5 MG AND 2.5 MG ON ALTERNATE DAYS
  7. ARAVA [Concomitant]
     Indication: JUVENILE IDIOPATHIC ARTHRITIS
     Route: 048
     Dates: start: 20100926
  8. OXIKLORIN [Concomitant]
     Indication: JUVENILE IDIOPATHIC ARTHRITIS
     Route: 048
  9. PREDNISOLON [Concomitant]
     Indication: JUVENILE IDIOPATHIC ARTHRITIS
     Route: 048
  10. SOMAC [Concomitant]
     Indication: GASTRIC DISORDER
     Route: 048
     Dates: start: 20090213
  11. SOMAC [Concomitant]
     Indication: PROPHYLAXIS
  12. CALCICHEW-D3 [Concomitant]
     Indication: MINERAL SUPPLEMENTATION
     Route: 048
     Dates: start: 20090213
  13. CALCICHEW-D3 [Concomitant]
     Indication: VITAMIN SUPPLEMENTATION

REACTIONS (13)
  - Dysphonia [Recovered/Resolved]
  - Cough [Not Recovered/Not Resolved]
  - Rhinitis [Recovered/Resolved]
  - Increased upper airway secretion [Not Recovered/Not Resolved]
  - Laryngitis fungal [Recovered/Resolved]
  - Laryngeal oedema [Recovered/Resolved]
  - Laryngeal erythema [Recovered/Resolved]
  - Dyspnoea [Recovered/Resolved]
  - Hyperhidrosis [Not Recovered/Not Resolved]
  - Polychondritis [Not Recovered/Not Resolved]
  - Thyroiditis [Recovered/Resolved]
  - Increased bronchial secretion [Unknown]
  - Intraocular pressure increased [Unknown]
